FAERS Safety Report 4930195-2 (Version None)
Quarter: 2006Q1

REPORT INFORMATION
  Report Type: 
  Country: None (occurrence: None)
  Receive Date: 20060302
  Receipt Date: 20060227
  Transmission Date: 20060701
  Serious: Yes (Other)
  Sender: FDA-Public Use
  Company Number: GB-AVENTIS-200611783GDDC

PATIENT
  Age: 49 Year
  Sex: Female

DRUGS (4)
  1. PREDNISOLONE [Suspect]
     Indication: COLITIS ULCERATIVE
     Dosage: DOSE: UNK
  2. HYDROCORTISONE [Suspect]
     Indication: COLITIS ULCERATIVE
     Dosage: DOSE: UNK
     Route: 042
  3. AMINOSALICYLIC ACID AND DERIVATIVES [Concomitant]
     Indication: COLITIS ULCERATIVE
     Dosage: DOSE: UNK
     Route: 042
  4. CYCLOSPORINE [Concomitant]
     Indication: COLITIS ULCERATIVE
     Dosage: DOSE: UNK
     Route: 042

REACTIONS (1)
  - PSYCHOTIC DISORDER [None]
